FAERS Safety Report 15221992 (Version 1)
Quarter: 2018Q3

REPORT INFORMATION
  Report Type: Spontaneous
  Country: IT (occurrence: IT)
  Receive Date: 20180731
  Receipt Date: 20180731
  Transmission Date: 20181010
  Serious: Yes (Other)
  Sender: FDA-Public Use
  Company Number: IT-ALLERGAN-1837623US

PATIENT
  Age: 38 Year
  Sex: Female

DRUGS (3)
  1. FOSFOMYCIN TROMETHAMINE ? BP [Suspect]
     Active Substance: FOSFOMYCIN TROMETHAMINE
     Indication: CYSTITIS
     Dosage: 1 DF, SINGLE
     Route: 048
     Dates: start: 20180524, end: 20180524
  2. TAPAZOLE [Suspect]
     Active Substance: METHIMAZOLE
     Indication: HYPERTHYROIDISM
     Dosage: 1 DF, QD
     Route: 048
     Dates: start: 20180524, end: 20180527
  3. FOSFOMYCIN TROMETHAMINE ? BP [Suspect]
     Active Substance: FOSFOMYCIN TROMETHAMINE
     Dosage: 1 DF, SINGLE
     Route: 048
     Dates: start: 20180525, end: 20180525

REACTIONS (2)
  - Urticaria [Recovering/Resolving]
  - Inappropriate schedule of drug administration [Unknown]

NARRATIVE: CASE EVENT DATE: 20180527
